FAERS Safety Report 23489291 (Version 1)
Quarter: 2024Q1

REPORT INFORMATION
  Report Type: Spontaneous
  Country: US (occurrence: US)
  Receive Date: 20240206
  Receipt Date: 20240206
  Transmission Date: 20240410
  Serious: No
  Sender: FDA-Public Use
  Company Number: US-BAUSCHBL-2024BNL001181

PATIENT
  Age: 68 Year
  Sex: Female

DRUGS (2)
  1. XIIDRA [Suspect]
     Active Substance: LIFITEGRAST
     Indication: Dry eye
     Route: 047
     Dates: start: 20240106, end: 20240108
  2. FLAXSEED [Concomitant]
     Active Substance: FLAX SEED
     Indication: Inflammation

REACTIONS (7)
  - Ocular hyperaemia [Unknown]
  - Eye pain [Unknown]
  - Condition aggravated [Not Recovered/Not Resolved]
  - Eye irritation [Unknown]
  - Lacrimation increased [Unknown]
  - Headache [Recovering/Resolving]
  - Vision blurred [Recovering/Resolving]

NARRATIVE: CASE EVENT DATE: 20240106
